FAERS Safety Report 6133284-2 (Version None)
Quarter: 2009Q1

REPORT INFORMATION
  Report Type: 
  Country: None (occurrence: None)
  Receive Date: 20090324
  Receipt Date: 20090324
  Transmission Date: 20090719
  Serious: No
  Sender: FDA-Public Use
  Company Number: None

PATIENT
  Age: 53 Year
  Sex: Female

DRUGS (2)
  1. BUPROPION HCL [Suspect]
     Indication: ATTENTION DEFICIT/HYPERACTIVITY DISORDER
     Dosage: TAKE TAKE 1 TABLET BY MOUTH DAILY
     Dates: start: 20080111, end: 20080319
  2. BUPROPION HCL [Suspect]
     Indication: FATIGUE
     Dosage: TAKE TAKE 1 TABLET BY MOUTH DAILY
     Dates: start: 20080111, end: 20080319

REACTIONS (4)
  - CARDIAC FLUTTER [None]
  - NO THERAPEUTIC RESPONSE [None]
  - SINUS ARRHYTHMIA [None]
  - SUPRAVENTRICULAR TACHYCARDIA [None]
